FAERS Safety Report 15204401 (Version 2)
Quarter: 2018Q3

REPORT INFORMATION
  Report Type: Spontaneous
  Country: FR (occurrence: FR)
  Receive Date: 20180726
  Receipt Date: 20180806
  Transmission Date: 20181010
  Serious: Yes (Death, Other)
  Sender: FDA-Public Use
  Company Number: FR-MYLANLABS-2018M1055164

PATIENT
  Age: 68 Year
  Sex: Female

DRUGS (15)
  1. CYCLOPHOSPHAMIDE. [Suspect]
     Active Substance: CYCLOPHOSPHAMIDE
     Indication: BENIGN BREAST NEOPLASM
     Dosage: 1500 MG/M2, UNK
     Route: 065
  2. MITOMYCIN. [Suspect]
     Active Substance: MITOMYCIN
     Indication: BREAST CANCER
  3. VINCRISTINE SULFATE. [Suspect]
     Active Substance: VINCRISTINE SULFATE
     Indication: BENIGN BREAST NEOPLASM
     Dosage: 6 MG/M2, UNK
  4. ETOPOSIDE. [Suspect]
     Active Substance: ETOPOSIDE
     Indication: BREAST CANCER
  5. DOXORUBICIN [Suspect]
     Active Substance: DOXORUBICIN
     Indication: BREAST CANCER
  6. VINDESINE [Suspect]
     Active Substance: VINDESINE
     Indication: BENIGN BREAST NEOPLASM
     Dosage: 12 MG/M2, UNK
  7. VP?16 [Suspect]
     Active Substance: ETOPOSIDE
     Indication: BENIGN BREAST NEOPLASM
     Dosage: 40 MG/M2, UNK
     Route: 065
  8. FLUOROURACIL. [Suspect]
     Active Substance: FLUOROURACIL
     Indication: BREAST CANCER
  9. MITOMYCIN. [Suspect]
     Active Substance: MITOMYCIN
     Indication: BENIGN BREAST NEOPLASM
     Dosage: 45 MG/M2, UNK
  10. DOXORUBICIN [Suspect]
     Active Substance: DOXORUBICIN
     Indication: BENIGN BREAST NEOPLASM
     Dosage: 200 MG/M2, UNK
  11. FLUOROURACIL. [Suspect]
     Active Substance: FLUOROURACIL
     Indication: BENIGN BREAST NEOPLASM
     Dosage: 1500 MG/M2, UNK
  12. ETOPOSIDE. [Suspect]
     Active Substance: ETOPOSIDE
     Indication: BENIGN BREAST NEOPLASM
     Dosage: 450 MG/M2, UNK
  13. VINDESINE [Suspect]
     Active Substance: VINDESINE
     Indication: BREAST CANCER
  14. VINCRISTINE SULFATE. [Suspect]
     Active Substance: VINCRISTINE SULFATE
     Indication: BREAST CANCER
  15. CYCLOPHOSPHAMIDE. [Suspect]
     Active Substance: CYCLOPHOSPHAMIDE
     Indication: BREAST CANCER

REACTIONS (2)
  - Second primary malignancy [Fatal]
  - Acute promyelocytic leukaemia [Fatal]
